FAERS Safety Report 14417501 (Version 3)
Quarter: 2018Q3

REPORT INFORMATION
  Report Type: Not Available
  Country: US (occurrence: US)
  Receive Date: 20180122
  Receipt Date: 20180712
  Transmission Date: 20181010
  Serious: No
  Sender: FDA-Public Use
  Company Number: US-NEUROCRINE BIOSCIENCES INC.-2017NBI02122

PATIENT
  Sex: Female

DRUGS (6)
  1. SEROQUEL [Concomitant]
     Active Substance: QUETIAPINE FUMARATE
     Dosage: AT BEDTIME
  2. ATIVAN [Concomitant]
     Active Substance: LORAZEPAM
  3. INGREZZA [Suspect]
     Active Substance: VALBENAZINE
     Route: 048
     Dates: start: 20171030, end: 2017
  4. INGREZZA [Suspect]
     Active Substance: VALBENAZINE
     Indication: DYSKINESIA
     Route: 048
     Dates: start: 20171023, end: 20171029
  5. FLUVOXAMINE [Concomitant]
     Active Substance: FLUVOXAMINE
  6. RISPERDAL [Concomitant]
     Active Substance: RISPERIDONE

REACTIONS (3)
  - Lethargy [Recovered/Resolved]
  - Hypophagia [Recovered/Resolved]
  - Somnolence [Recovered/Resolved]

NARRATIVE: CASE EVENT DATE: 2017
